FAERS Safety Report 8840756 (Version 1)
Quarter: 2012Q4

REPORT INFORMATION
  Report Type: 
  Country: FR (occurrence: FR)
  Receive Date: 20121015
  Receipt Date: 20121015
  Transmission Date: 20130627
  Serious: Yes (Hospitalization, Other)
  Sender: FDA-Public Use
  Company Number: FR-ELI_LILLY_AND_COMPANY-FR201210002247

PATIENT
  Age: 37 Year
  Sex: Male

DRUGS (2)
  1. CIALIS [Suspect]
     Indication: ERECTILE DYSFUNCTION
     Dosage: 10 mg, 3/W
     Route: 048
     Dates: start: 201101, end: 20120504
  2. LYRICA [Concomitant]
     Indication: NEURALGIA
     Dosage: 1 DF, unknown

REACTIONS (1)
  - Transient ischaemic attack [Recovered/Resolved]
